FAERS Safety Report 23694838 (Version 4)
Quarter: 2025Q1

REPORT INFORMATION
  Report Type: Report from Study
  Country: US (occurrence: US)
  Receive Date: 20240402
  Receipt Date: 20250130
  Transmission Date: 20250408
  Serious: Yes (Disabling, Other)
  Sender: AMGEN
  Company Number: US-HORIZON THERAPEUTICS-HZN-2022-009777

PATIENT
  Age: 59 Year
  Sex: Female

DRUGS (31)
  1. TEPEZZA [Suspect]
     Active Substance: TEPROTUMUMAB-TRBW
     Indication: Graves^ disease
     Route: 042
     Dates: start: 20220520
  2. TEPEZZA [Suspect]
     Active Substance: TEPROTUMUMAB-TRBW
     Indication: Endocrine ophthalmopathy
     Dosage: 1445 MILLIGRAM, Q3WK (UNKNOWN INFUSION)
     Route: 042
     Dates: start: 20220701
  3. TEPEZZA [Suspect]
     Active Substance: TEPROTUMUMAB-TRBW
     Dosage: 1420 MILLIGRAM, Q3WK  (UNKNOWN INFUSION)
     Route: 042
     Dates: start: 20220722
  4. TEPEZZA [Suspect]
     Active Substance: TEPROTUMUMAB-TRBW
     Dosage: 1398 MILLIGRAM, Q3WK (UNKNOWN INFUSION)
     Route: 042
     Dates: start: 20220812
  5. TEPEZZA [Suspect]
     Active Substance: TEPROTUMUMAB-TRBW
     Dosage: 1364 MILLIGRAM, Q3WK  (UNKNOWN INFUSION)
     Route: 042
     Dates: start: 20220902
  6. TEPEZZA [Suspect]
     Active Substance: TEPROTUMUMAB-TRBW
     Dosage: 1354 MILLIGRAM, Q3WK (UNKNOWN INFUSION)
     Route: 042
     Dates: start: 20220923
  7. TEPEZZA [Suspect]
     Active Substance: TEPROTUMUMAB-TRBW
     Dosage: 1348 MILLIGRAM, Q3WK (EIGHTH INFUSION)
     Route: 042
     Dates: start: 20221014
  8. PREDNISONE [Suspect]
     Active Substance: PREDNISONE
     Indication: Otitis media acute
     Route: 048
  9. SYNTHROID [Concomitant]
     Active Substance: LEVOTHYROXINE SODIUM
     Dosage: 112 MILLIGRAM, QD (MORNING ON AN EMPTY STOMACH)
     Route: 048
     Dates: start: 20220228
  10. ATIVAN [Concomitant]
     Active Substance: LORAZEPAM
     Route: 065
     Dates: start: 20220307
  11. DEXILANT [Concomitant]
     Active Substance: DEXLANSOPRAZOLE
     Route: 065
  12. BENADRYL [Concomitant]
     Active Substance: DIPHENHYDRAMINE HYDROCHLORIDE
     Route: 065
  13. PEPCID [Concomitant]
     Active Substance: FAMOTIDINE
     Route: 065
  14. LEVOXYL [Concomitant]
     Active Substance: LEVOTHYROXINE SODIUM
     Route: 065
  15. ACETAMINOPHEN [Concomitant]
     Active Substance: ACETAMINOPHEN
     Dosage: 500 MILLIGRAM, Q8H (2 TABLETS)
     Route: 048
  16. IBUPROFEN [Concomitant]
     Active Substance: IBUPROFEN
     Dosage: 800 MILLIGRAM, Q8H (1 TABLET FOOD OR MILK AS NEEDED)
     Route: 048
  17. OXYCODONE HYDROCHLORIDE [Concomitant]
     Active Substance: OXYCODONE HYDROCHLORIDE
     Route: 048
  18. VALIUM [Concomitant]
     Active Substance: DIAZEPAM
  19. BUSPAR [Concomitant]
     Active Substance: BUSPIRONE HYDROCHLORIDE
     Dosage: 10 MILLIGRAM, BID
     Route: 065
     Dates: start: 20220215
  20. PREDNISOLONE [Concomitant]
     Active Substance: PREDNISOLONE
     Indication: Dry eye
  21. XIIDRA [Concomitant]
     Active Substance: LIFITEGRAST
     Indication: Dry eye
  22. REFRESH PLUS [Concomitant]
     Active Substance: CARBOXYMETHYLCELLULOSE SODIUM
     Dosage: 1 DROP, QID
     Route: 047
  23. DIETARY SUPPLEMENT\UBIDECARENONE [Concomitant]
     Active Substance: DIETARY SUPPLEMENT\UBIDECARENONE
     Dosage: 30 MILLIGRAM, QD
     Route: 048
  24. VITAMIN B12 [Concomitant]
     Active Substance: CYANOCOBALAMIN
     Route: 048
  25. FOLIC ACID [Concomitant]
     Active Substance: FOLIC ACID
     Route: 048
  26. GINGER [Concomitant]
     Active Substance: GINGER
     Route: 048
  27. MAGNESIUM [Concomitant]
     Active Substance: MAGNESIUM
     Route: 048
  28. VITAMINS [Concomitant]
     Active Substance: VITAMINS
     Route: 048
  29. PROBIOTICS NOS [Concomitant]
     Active Substance: PROBIOTICS NOS
     Route: 048
  30. VITAMIN D [Concomitant]
     Active Substance: VITAMIN D NOS
     Route: 048
  31. BIOTIN [Concomitant]
     Active Substance: BIOTIN

REACTIONS (40)
  - Disability [Not Recovered/Not Resolved]
  - Deafness neurosensory [Not Recovered/Not Resolved]
  - Physical disability [Not Recovered/Not Resolved]
  - Blindness [Unknown]
  - Cerebral small vessel ischaemic disease [Unknown]
  - Anti-thyroid antibody increased [Unknown]
  - Anxiety [Not Recovered/Not Resolved]
  - Autophony [Not Recovered/Not Resolved]
  - Blood cholesterol increased [Unknown]
  - Blood pressure decreased [Unknown]
  - Blood pressure systolic increased [Unknown]
  - Blood triglycerides increased [Unknown]
  - Concomitant disease aggravated [Not Recovered/Not Resolved]
  - COVID-19 [Unknown]
  - Deformity [Not Recovered/Not Resolved]
  - Diplopia [Unknown]
  - Discomfort [Unknown]
  - Dizziness [Unknown]
  - Ear discomfort [Unknown]
  - Ear infection [Unknown]
  - Economic problem [Not Recovered/Not Resolved]
  - Eustachian tube dysfunction [Unknown]
  - Eustachian tube patulous [Unknown]
  - Eye pain [Unknown]
  - Fatigue [Unknown]
  - Gastrooesophageal reflux disease [Unknown]
  - Head discomfort [Unknown]
  - High density lipoprotein increased [Unknown]
  - Injury [Not Recovered/Not Resolved]
  - Mucosal inflammation [Unknown]
  - Nasal congestion [Unknown]
  - Oral surgery [Unknown]
  - Pain [Not Recovered/Not Resolved]
  - Palpitations [Unknown]
  - Productive cough [Unknown]
  - Quality of life decreased [Not Recovered/Not Resolved]
  - Sinus disorder [Unknown]
  - Tinnitus [Not Recovered/Not Resolved]
  - Thyroglobulin increased [Unknown]
  - Upper-airway cough syndrome [Unknown]

NARRATIVE: CASE EVENT DATE: 20210817
